FAERS Safety Report 4712237-2 (Version None)
Quarter: 2005Q3

REPORT INFORMATION
  Report Type: 
  Country: None (occurrence: None)
  Receive Date: 20050712
  Receipt Date: 20050707
  Transmission Date: 20060218
  Serious: Yes (Death)
  Sender: FDA-Public Use
  Company Number: US-GLAXOSMITHKLINE-A0565283A

PATIENT
  Age: 53 Year
  Sex: Female

DRUGS (1)
  1. NAVELBINE [Suspect]
     Indication: BREAST CANCER METASTATIC
     Route: 042
     Dates: start: 20050629

REACTIONS (5)
  - CHEST DISCOMFORT [None]
  - DEATH [None]
  - DISCOMFORT [None]
  - FALL [None]
  - INFUSION RELATED REACTION [None]
